FAERS Safety Report 6243040-2 (Version None)
Quarter: 2009Q2

REPORT INFORMATION
  Report Type: 
  Country: None (occurrence: None)
  Receive Date: 20090624
  Receipt Date: 20090617
  Transmission Date: 20091009
  Serious: Yes (Other)
  Sender: FDA-Public Use
  Company Number: AU-WYE-H09507809

PATIENT
  Sex: Male
  Weight: 89.2 kg

DRUGS (10)
  1. TEMSIROLIMUS [Suspect]
     Indication: RENAL CELL CARCINOMA
     Route: 042
     Dates: start: 20090211, end: 20090311
  2. TEMSIROLIMUS [Suspect]
     Route: 042
     Dates: start: 20090408, end: 20090415
  3. TEMSIROLIMUS [Suspect]
     Route: 042
     Dates: start: 20090520, end: 20090520
  4. TEMSIROLIMUS [Suspect]
     Route: 042
     Dates: start: 20090401, end: 20090401
  5. TEMSIROLIMUS [Suspect]
     Route: 042
     Dates: start: 20090429, end: 20090506
  6. TEMAZEPAM [Concomitant]
     Indication: SLEEP DISORDER
     Dosage: UNKNOWN
     Dates: start: 20090308
  7. PARACETAMOL [Concomitant]
     Indication: PAIN
     Dosage: UNKNOWN
     Dates: start: 20090214
  8. BEVACIZUMAB [Suspect]
     Indication: RENAL CELL CARCINOMA
     Route: 042
     Dates: start: 20090211, end: 20090311
  9. BEVACIZUMAB [Suspect]
     Dates: start: 20090408, end: 20090520
  10. NAPROSYN [Concomitant]
     Indication: PAIN
     Dosage: UNKNOWN
     Dates: start: 20050101

REACTIONS (1)
  - INTERSTITIAL LUNG DISEASE [None]
